FAERS Safety Report 8169087-7 (Version None)
Quarter: 2012Q1

REPORT INFORMATION
  Report Type: 
  Country: None (occurrence: None)
  Receive Date: 20120227
  Receipt Date: 20120216
  Transmission Date: 20120608
  Serious: Yes (Other)
  Sender: FDA-Public Use
  Company Number: ES-ASTRAZENECA-2012SE11215

PATIENT
  Age: 55 Year
  Sex: Male

DRUGS (2)
  1. MEROPENEM [Suspect]
     Indication: WOUND SEPSIS
     Route: 042
     Dates: start: 20111006, end: 20111017
  2. VANCOMYCIN [Suspect]
     Indication: WOUND SEPSIS
     Route: 042
     Dates: start: 20111006, end: 20111026

REACTIONS (1)
  - EOSINOPHILIA [None]
